FAERS Safety Report 22163607 (Version 1)
Quarter: 2023Q2

REPORT INFORMATION
  Report Type: Report from Study
  Country: CZ (occurrence: CZ)
  Receive Date: 20230401
  Receipt Date: 20230401
  Transmission Date: 20230721
  Serious: Yes (Other)
  Sender: FDA-Public Use
  Company Number: CZ-TEVA-2023-CZ-2870479

PATIENT
  Age: 47 Year
  Sex: Female

DRUGS (1)
  1. COPAXONE [Suspect]
     Active Substance: GLATIRAMER ACETATE
     Indication: Multiple sclerosis
     Dosage: 40 MG/ML
     Route: 058
     Dates: start: 20191127, end: 20220712

REACTIONS (3)
  - Drug hypersensitivity [Unknown]
  - Mass [Unknown]
  - Erythema [Unknown]

NARRATIVE: CASE EVENT DATE: 20220101
